FAERS Safety Report 4786746-4 (Version None)
Quarter: 2005Q4

REPORT INFORMATION
  Report Type: 
  Country: None (occurrence: None)
  Receive Date: 20051003
  Receipt Date: 20051003
  Transmission Date: 20060501
  Serious: Yes (Other)
  Sender: FDA-Public Use
  Company Number: None

PATIENT
  Age: 41 Year
  Sex: Female
  Weight: 68.0396 kg

DRUGS (1)
  1. CLONAZEPAM [Suspect]
     Indication: PANIC DISORDER
     Dosage: .25 MG 2 TIMES PER DAY PO
     Route: 048
     Dates: start: 20041128, end: 20050930

REACTIONS (32)
  - ABDOMINAL PAIN UPPER [None]
  - ASTHENIA [None]
  - CONVULSION [None]
  - CRYING [None]
  - DIZZINESS [None]
  - DRUG EFFECT DECREASED [None]
  - DRUG WITHDRAWAL SYNDROME [None]
  - DYSPEPSIA [None]
  - DYSPHAGIA [None]
  - EAR DISCOMFORT [None]
  - EAR PAIN [None]
  - EYE PAIN [None]
  - FEELING ABNORMAL [None]
  - FEELING COLD [None]
  - HEADACHE [None]
  - HEART RATE INCREASED [None]
  - HEART RATE IRREGULAR [None]
  - HOT FLUSH [None]
  - HUNGER [None]
  - HYPOAESTHESIA [None]
  - IMPAIRED DRIVING ABILITY [None]
  - INSOMNIA [None]
  - MUSCLE SPASMS [None]
  - MUSCLE TWITCHING [None]
  - NAUSEA [None]
  - PAIN [None]
  - PALPITATIONS [None]
  - PARAESTHESIA [None]
  - TONGUE BITING [None]
  - TREMOR [None]
  - TYMPANIC MEMBRANE DISORDER [None]
  - VISUAL ACUITY REDUCED [None]
